FAERS Safety Report 22629318 (Version 1)
Quarter: 2023Q2

REPORT INFORMATION
  Report Type: Spontaneous
  Country: US (occurrence: US)
  Receive Date: 20230622
  Receipt Date: 20230622
  Transmission Date: 20230722
  Serious: Yes (Other)
  Sender: FDA-Public Use
  Company Number: US-PURDUE PHARMA-USA-2023-0301525

PATIENT
  Age: 55 Year
  Sex: Female

DRUGS (15)
  1. OXYCODONE HYDROCHLORIDE [Suspect]
     Active Substance: OXYCODONE HYDROCHLORIDE
     Indication: Arthralgia
     Dosage: 4 DOSAGE FORM (ACQUIRED SEVERAL HUNDRED OXYCODONE FROM A DECEASED FAMILY MEMBER. WHEN HER TRAMADOL S
     Route: 065
  2. OXYCODONE HYDROCHLORIDE [Suspect]
     Active Substance: OXYCODONE HYDROCHLORIDE
     Indication: Musculoskeletal chest pain
  3. TRAMADOL [Suspect]
     Active Substance: TRAMADOL
     Indication: Musculoskeletal chest pain
     Dosage: 50 MILLIGRAM, TID
     Route: 065
     Dates: start: 2011
  4. TRAMADOL [Suspect]
     Active Substance: TRAMADOL
     Indication: Arthralgia
     Dosage: 50 MILLIGRAM, QID
     Route: 065
     Dates: start: 2017
  5. TRAMADOL [Suspect]
     Active Substance: TRAMADOL
     Dosage: 2 DOSAGE FORM (DOSAGE OF TRAMADOL WAS FURTHER INCREASED TO 2 50 MG TABLTES 4 TIMES DAILY, WRITTEN FO
     Route: 065
     Dates: start: 2017
  6. TRAMADOL [Suspect]
     Active Substance: TRAMADOL
     Dosage: 25 DOSAGE FORM (ADDITIONAL TRAMADOL ^OFF THE STREET^ FOR SEVERAL YEARS, DESCRIBED TAKING 20-25 TABLE
     Route: 065
  7. TRAMADOL [Suspect]
     Active Substance: TRAMADOL
     Dosage: 15 DOSAGE FORM [PRESCRIBED 50 MG TRAMADOL TABLETS WITH  INSTRUCTION TO TAKE 50 MG (3 TABLETS) 5 TIME
     Route: 065
     Dates: start: 2021, end: 2021
  8. TRAMADOL [Suspect]
     Active Substance: TRAMADOL
     Dosage: 3 DOSAGE FORM [INSTRUCTED TO DECREASE DAILY DOSE FURTHER BY TAKING TRAMADOL 150 MG (3 50 MG TABLETS)
     Route: 065
     Dates: start: 2021, end: 2021
  9. TRAMADOL [Suspect]
     Active Substance: TRAMADOL
     Dosage: 180 DOSAGE FORM (50-100 MG, 180 TABLETS TO TAKE FOUR TIMES DAILY)
     Route: 065
  10. TRAMADOL [Suspect]
     Active Substance: TRAMADOL
     Dosage: 6 DOSAGE FORM (TAPERED FROM 12 TABLETS OF 50 MG TRAMADOL PER DAY TO SIX TABLETS OF 50 MG TRAMADOL PE
     Route: 065
     Dates: start: 2021, end: 2021
  11. TRAMADOL [Suspect]
     Active Substance: TRAMADOL
     Dosage: 20 DOSAGE FORM (ADDITIONAL TRAMADOL ^OFF THE STREET^ FOR SEVERAL YEARS, DESCRIBED TAKING 20-25 TABLE
     Route: 065
  12. TRAMADOL [Suspect]
     Active Substance: TRAMADOL
     Dosage: 1 DOSAGE FORM (TRAMADOL 50 MG TABLETS IN 2011 DOSED 3 TIMES DAILY)
     Route: 065
     Dates: start: 2011
  13. TRAMADOL [Suspect]
     Active Substance: TRAMADOL
     Dosage: 1 DOSAGE FORM (SLOWLY ESCALATED THE DOSE TO 4 TIMES DAILY, PRESCRIBING REFILLS RANGING FROM 90 TO 12
     Route: 065
  14. GABAPENTIN [Concomitant]
     Active Substance: GABAPENTIN
     Indication: Musculoskeletal chest pain
     Dosage: INTERMITTENT USE
     Route: 065
  15. CYCLOBENZAPRINE [Concomitant]
     Active Substance: CYCLOBENZAPRINE
     Indication: Musculoskeletal chest pain
     Dosage: INTERMITTENT USE
     Route: 065

REACTIONS (11)
  - Electric shock sensation [Recovering/Resolving]
  - Analgesic drug level increased [Unknown]
  - Discomfort [Recovering/Resolving]
  - Disturbance in attention [Recovering/Resolving]
  - Agitation [Recovering/Resolving]
  - Drug use disorder [Recovered/Resolved]
  - Drug withdrawal syndrome [Recovering/Resolving]
  - Intentional product misuse [Recovered/Resolved]
  - Drug dependence [Recovered/Resolved]
  - Anxiety [Recovering/Resolving]
  - Drug diversion [Unknown]
